FAERS Safety Report 24369636 (Version 1)
Quarter: 2024Q3

REPORT INFORMATION
  Report Type: Report from Study
  Country: US (occurrence: US)
  Receive Date: 20240927
  Receipt Date: 20240927
  Transmission Date: 20241016
  Serious: No
  Sender: ROCHE
  Company Number: US-ROCHE-3506001

PATIENT
  Age: 69 Year
  Sex: Female
  Weight: 80.29 kg

DRUGS (1)
  1. LUCENTIS [Suspect]
     Active Substance: RANIBIZUMAB
     Indication: Retinal neovascularisation
     Route: 031
     Dates: start: 20230228, end: 20240116

REACTIONS (1)
  - Vision blurred [Not Recovered/Not Resolved]
